FAERS Safety Report 16148799 (Version 1)
Quarter: 2019Q2

REPORT INFORMATION
  Report Type: Report from Study
  Country: US (occurrence: US)
  Receive Date: 20190402
  Receipt Date: 20190402
  Transmission Date: 20190711
  Serious: Yes (Hospitalization)
  Sender: FDA-Public Use
  Company Number: PHEH2019US013732

PATIENT
  Sex: Female

DRUGS (1)
  1. VALSARTAN. [Suspect]
     Active Substance: VALSARTAN
     Indication: PRODUCT USED FOR UNKNOWN INDICATION
     Route: 065

REACTIONS (7)
  - Hypoaesthesia oral [Unknown]
  - Hypoaesthesia [Unknown]
  - Dysphagia [Unknown]
  - Hypoaesthesia eye [Unknown]
  - Feeling abnormal [Unknown]
  - Hypersensitivity [Unknown]
  - Peripheral coldness [Unknown]
